FAERS Safety Report 9898403 (Version 4)
Quarter: 2014Q2

REPORT INFORMATION
  Report Type: Report from Study
  Country: ES (occurrence: ES)
  Receive Date: 20140214
  Receipt Date: 20140401
  Transmission Date: 20141212
  Serious: Yes (Hospitalization, Disabling, Other)
  Sender: FDA-Public Use
  Company Number: ES-GLAXOSMITHKLINE-B0951664A

PATIENT
  Age: 50 Year
  Sex: Male

DRUGS (3)
  1. OFATUMUMAB [Suspect]
     Indication: HODGKIN^S DISEASE
     Route: 042
     Dates: start: 20130903, end: 20131001
  2. FLUDARABINE [Suspect]
     Indication: HODGKIN^S DISEASE
     Dosage: 60MG PER DAY
     Dates: start: 20130916
  3. MELPHALAN [Suspect]
     Indication: HODGKIN^S DISEASE
     Dosage: 140MG PER DAY
     Dates: start: 20130921

REACTIONS (1)
  - Optic neuropathy [Not Recovered/Not Resolved]
